FAERS Safety Report 11805272 (Version 1)
Quarter: 2015Q4

REPORT INFORMATION
  Report Type: Spontaneous
  Country: US (occurrence: None)
  Receive Date: 20151204
  Receipt Date: 20151204
  Transmission Date: 20160305
  Serious: No
  Sender: FDA-Public Use
  Company Number: None

PATIENT
  Age: 46 Year
  Sex: Female
  Weight: 83.92 kg

DRUGS (5)
  1. ESTRADIOL. [Suspect]
     Active Substance: ESTRADIOL
     Indication: HORMONE REPLACEMENT THERAPY
     Dosage: 1 PATCH 2 TIMES/WEEK APPLIED TO A SURFACE, USUALLY THE SKIN
     Route: 062
     Dates: start: 20151119, end: 20151203
  2. ZANTAC [Concomitant]
     Active Substance: RANITIDINE HYDROCHLORIDE
  3. VITAMINS [Concomitant]
     Active Substance: VITAMINS
  4. ESTROGEN [Concomitant]
     Active Substance: ESTRONE\SUS SCROFA OVARY
  5. TUMS [Concomitant]
     Active Substance: CALCIUM CARBONATE

REACTIONS (7)
  - Menopausal symptoms [None]
  - Hormone level abnormal [None]
  - Product quality issue [None]
  - Product adhesion issue [None]
  - Wrong technique in product usage process [None]
  - Economic problem [None]
  - Skin reaction [None]

NARRATIVE: CASE EVENT DATE: 20151119
